FAERS Safety Report 15994991 (Version 1)
Quarter: 2019Q1

REPORT INFORMATION
  Report Type: Report from Study
  Country: US (occurrence: US)
  Receive Date: 20190222
  Receipt Date: 20190222
  Transmission Date: 20190418
  Serious: Yes (Disabling, Other)
  Sender: FDA-Public Use
  Company Number: US-REGENERON PHARMACEUTICALS, INC.-2019-18628

PATIENT

DRUGS (1)
  1. EYLEA [Suspect]
     Active Substance: AFLIBERCEPT
     Indication: EYE DISORDER
     Dosage: UNK, INJECTIONS IN EACH EYE 1 WEEK APART, OU
     Route: 031
     Dates: start: 2018

REACTIONS (5)
  - Drug ineffective [Unknown]
  - Blindness unilateral [Unknown]
  - Eye disorder [Unknown]
  - Eye pain [Unknown]
  - Eye operation [Unknown]

NARRATIVE: CASE EVENT DATE: 2018
